FAERS Safety Report 9704750 (Version 3)
Quarter: 2013Q4

REPORT INFORMATION
  Report Type: Spontaneous
  Country: AU (occurrence: AU)
  Receive Date: 20131122
  Receipt Date: 20131231
  Transmission Date: 20140711
  Serious: Yes (Other)
  Sender: FDA-Public Use
  Company Number: AU-ASTRAZENECA-2013SE69755

PATIENT
  Age: 55 Year
  Sex: Male

DRUGS (2)
  1. PULMICORT [Suspect]
     Dosage: 400 MCG, ONE PUFF BID
     Route: 055
     Dates: start: 201308
  2. PULMICORT [Suspect]
     Route: 055

REACTIONS (2)
  - Asthma [Unknown]
  - Drug ineffective [Unknown]
